FAERS Safety Report 5585418-6 (Version None)
Quarter: 2008Q1

REPORT INFORMATION
  Report Type: 
  Country: None (occurrence: None)
  Receive Date: 20080109
  Receipt Date: 20071227
  Transmission Date: 20080703
  Serious: Yes (Hospitalization)
  Sender: FDA-Public Use
  Company Number: FR-GENENTECH-253796

PATIENT
  Sex: Female

DRUGS (3)
  1. HERCEPTIN [Suspect]
     Indication: BREAST CANCER
     Dosage: 3 MG/KG, 1/WEEK
     Route: 042
  2. HERCEPTIN [Suspect]
     Dosage: 6 MG/KG, UNK
     Route: 042
  3. TAXOL [Concomitant]
     Indication: BREAST CANCER

REACTIONS (1)
  - HEPATITIS [None]
